FAERS Safety Report 25587817 (Version 2)
Quarter: 2025Q3

REPORT INFORMATION
  Report Type: Report from Study
  Country: US (occurrence: US)
  Receive Date: 20250721
  Receipt Date: 20250806
  Transmission Date: 20251021
  Serious: Yes (Death, Other)
  Sender: DAIICHI
  Company Number: US-DSJP-DS-2025-150155-US

PATIENT
  Age: 55 Year
  Sex: Female

DRUGS (1)
  1. ENHERTU [Suspect]
     Active Substance: FAM-TRASTUZUMAB DERUXTECAN-NXKI
     Indication: Product used for unknown indication
     Dosage: 356 MG (OVER 30 MINUTES), ONCE EVERY 3 WK
     Route: 042
     Dates: start: 20250123

REACTIONS (3)
  - Death [Fatal]
  - Disease progression [Unknown]
  - Weight increased [Unknown]

NARRATIVE: CASE EVENT DATE: 20250626
